FAERS Safety Report 17444412 (Version 1)
Quarter: 2020Q1

REPORT INFORMATION
  Report Type: Report from Study
  Country: BR (occurrence: BR)
  Receive Date: 20200221
  Receipt Date: 20200221
  Transmission Date: 20200409
  Serious: Yes (Hospitalization)
  Sender: FDA-Public Use
  Company Number: BR-UCBSA-2019024624

PATIENT
  Sex: Female
  Weight: 65 kg

DRUGS (4)
  1. CERTOLIZUMAB PEGOL [Suspect]
     Active Substance: CERTOLIZUMAB PEGOL
     Dosage: 400 MILLIGRAM, MONTHLY (QM)
     Route: 058
     Dates: start: 20190520
  2. BRONDILATIN [Concomitant]
     Indication: INFLUENZA
     Route: 048
  3. CERTOLIZUMAB PEGOL [Suspect]
     Active Substance: CERTOLIZUMAB PEGOL
     Indication: RHEUMATOID ARTHRITIS
     Dosage: 400 MILLIGRAM, MONTHLY (QM)
     Route: 058
     Dates: end: 201904
  4. FISIOTON [Concomitant]
     Indication: INFLUENZA
     Dosage: UNK
     Route: 048

REACTIONS (2)
  - Influenza [Recovered/Resolved]
  - Exostosis [Recovering/Resolving]
